FAERS Safety Report 17650801 (Version 7)
Quarter: 2020Q4

REPORT INFORMATION
  Report Type: Report from Study
  Country: DE (occurrence: DE)
  Receive Date: 20200409
  Receipt Date: 20201122
  Transmission Date: 20210113
  Serious: Yes (Other)
  Sender: FDA-Public Use
  Company Number: NVSC2020DE094520

PATIENT
  Age: 11 Year
  Sex: Female
  Weight: 53.7 kg

DRUGS (2)
  1. ILARIS [Suspect]
     Active Substance: CANAKINUMAB
     Dosage: 150 MG
     Route: 058
     Dates: start: 20200412
  2. ILARIS [Suspect]
     Active Substance: CANAKINUMAB
     Indication: MUCKLE-WELLS SYNDROME
     Dosage: 150 MG
     Route: 058
     Dates: start: 20180617, end: 20200301

REACTIONS (6)
  - Nausea [Unknown]
  - Dizziness [Unknown]
  - Headache [Unknown]
  - Suspected COVID-19 [Recovering/Resolving]
  - Proteinuria [Not Recovered/Not Resolved]
  - Upper respiratory tract infection [Unknown]

NARRATIVE: CASE EVENT DATE: 201912
